FAERS Safety Report 14377227 (Version 1)
Quarter: 2018Q1

REPORT INFORMATION
  Report Type: Spontaneous
  Country: US (occurrence: US)
  Receive Date: 20180111
  Receipt Date: 20180111
  Transmission Date: 20180509
  Serious: No
  Sender: FDA-Public Use
  Company Number: US-DRREDDYS-USA/USA/17/0092961

PATIENT
  Age: 87 Year
  Sex: Male
  Weight: 40.82 kg

DRUGS (5)
  1. SPIRIVA [Concomitant]
     Active Substance: TIOTROPIUM BROMIDE MONOHYDRATE
     Indication: PRODUCT USED FOR UNKNOWN INDICATION
     Route: 065
  2. COUMADIN [Concomitant]
     Active Substance: WARFARIN SODIUM
     Indication: PRODUCT USED FOR UNKNOWN INDICATION
     Route: 065
  3. NICOTINE. [Suspect]
     Active Substance: NICOTINE
     Indication: SMOKING CESSATION THERAPY
     Route: 062
  4. NICOTINE. [Suspect]
     Active Substance: NICOTINE
     Route: 062
  5. NICOTINE. [Suspect]
     Active Substance: NICOTINE
     Route: 062

REACTIONS (3)
  - Insomnia [Not Recovered/Not Resolved]
  - Abnormal dreams [Recovered/Resolved]
  - Inappropriate schedule of drug administration [Unknown]
